FAERS Safety Report 4543607-3 (Version None)
Quarter: 2005Q1

REPORT INFORMATION
  Report Type: 
  Country: None (occurrence: None)
  Receive Date: 20050103
  Receipt Date: 20041209
  Transmission Date: 20050727
  Serious: Yes (Death, Hospitalization)
  Sender: FDA-Public Use
  Company Number: CH-GLAXOSMITHKLINE-B0361987A

PATIENT
  Age: 74 Year
  Sex: Female

DRUGS (12)
  1. AVANDIA [Suspect]
     Route: 048
     Dates: start: 20020217, end: 20020310
  2. NORVASC [Suspect]
     Dosage: 10MG PER DAY
     Route: 048
     Dates: end: 20020331
  3. SORTIS [Suspect]
     Indication: CARDIOVASCULAR DISORDER
     Dosage: 20MG PER DAY
     Route: 048
     Dates: end: 20020331
  4. SEROPRAM [Suspect]
     Dosage: 40MG PER DAY
     Route: 048
     Dates: start: 20020101, end: 20020331
  5. CO-RENITEN [Suspect]
     Indication: CARDIOVASCULAR DISORDER
     Dosage: 1TAB PER DAY
     Route: 048
     Dates: end: 20020331
  6. PREMARIN [Suspect]
     Dosage: .625MG PER DAY
     Route: 048
     Dates: end: 20020331
  7. BELOC ZOK [Suspect]
     Indication: CARDIOVASCULAR DISORDER
     Dosage: 100MG PER DAY
     Route: 048
     Dates: end: 20020331
  8. MARCOUMAR [Suspect]
     Dosage: 3MG AS REQUIRED
     Route: 048
     Dates: end: 20020331
  9. ENDOXAN [Suspect]
     Indication: NON-HODGKIN'S LYMPHOMA STAGE IV
     Route: 042
     Dates: start: 20020116, end: 20040312
  10. DOXORUBICIN HYDROCHLORIDE [Suspect]
     Indication: NON-HODGKIN'S LYMPHOMA STAGE IV
     Route: 042
     Dates: start: 20020116, end: 20020312
  11. VINCRISTINE [Suspect]
     Indication: NON-HODGKIN'S LYMPHOMA STAGE IV
     Route: 042
     Dates: start: 20020116, end: 20020312
  12. PREDNISOLONE [Suspect]
     Indication: NON-HODGKIN'S LYMPHOMA STAGE IV
     Route: 065
     Dates: start: 20020116, end: 20020312

REACTIONS (19)
  - ACUTE PULMONARY OEDEMA [None]
  - ALANINE AMINOTRANSFERASE INCREASED [None]
  - ARTERIOSCLEROSIS [None]
  - ASPARTATE AMINOTRANSFERASE INCREASED [None]
  - ATRIAL TACHYCARDIA [None]
  - BLOOD ALKALINE PHOSPHATASE INCREASED [None]
  - BLOOD CREATININE INCREASED [None]
  - BUNDLE BRANCH BLOCK LEFT [None]
  - CONVULSION [None]
  - DEATH [None]
  - DIARRHOEA [None]
  - GENERAL PHYSICAL HEALTH DETERIORATION [None]
  - HEPATIC FAILURE [None]
  - HEPATIC NECROSIS [None]
  - INFLAMMATION [None]
  - METASTASES TO LIVER [None]
  - PULMONARY CONGESTION [None]
  - SYNCOPE [None]
  - VOMITING [None]
